FAERS Safety Report 9203094 (Version 1)
Quarter: 2013Q1

REPORT INFORMATION
  Report Type: Spontaneous
  Country: US (occurrence: None)
  Receive Date: 20120709
  Receipt Date: 20120709
  Transmission Date: 20140127
  Serious: Yes (Other)
  Sender: FDA-Public Use
  Company Number: PHHY2010US58396

PATIENT
  Age: 78 Year
  Sex: Male
  Weight: 81.6 kg

DRUGS (5)
  1. GLEEVEC (IMATINIB) UNKNOWN [Suspect]
     Indication: CHRONIC MYELOID LEUKAEMIA
     Route: 048
     Dates: start: 20100517
  2. ASPIRIN (ACETYSALICYLIC ACID) [Concomitant]
  3. ZOCOR (SIMVASTATIN) [Concomitant]
  4. LISINOPRIL (LISINOPRIL) [Concomitant]
  5. PERCOCET [Concomitant]

REACTIONS (8)
  - Weight decreased [None]
  - Agitation [None]
  - Pain in extremity [None]
  - Back pain [None]
  - Nausea [None]
  - Vomiting [None]
  - Diarrhoea [None]
  - Gait disturbance [None]
